FAERS Safety Report 25615549 (Version 1)
Quarter: 2025Q3

REPORT INFORMATION
  Report Type: Report from Study
  Country: CN (occurrence: CN)
  Receive Date: 20250729
  Receipt Date: 20250729
  Transmission Date: 20251021
  Serious: Yes (Other)
  Sender: SANOFI AVENTIS
  Company Number: CN-DialogSolutions-SAAVPROD-PI803579-C1

PATIENT

DRUGS (3)
  1. OXALIPLATIN [Suspect]
     Active Substance: OXALIPLATIN
     Indication: Rectal cancer
     Route: 042
  2. CAPECITABINE [Suspect]
     Active Substance: CAPECITABINE
     Indication: Rectal cancer
     Dosage: 1000 MG/M2, BID (ON DAY 1-14 OF EACH 3 WEEK CYCLE) STARTING 1 WEEK LATER
     Route: 048
  3. SINTILIMAB [Suspect]
     Active Substance: SINTILIMAB
     Indication: Rectal cancer
     Route: 042

REACTIONS (1)
  - Pneumonitis [Recovering/Resolving]
